FAERS Safety Report 8203385-3 (Version None)
Quarter: 2012Q1

REPORT INFORMATION
  Report Type: 
  Country: None (occurrence: None)
  Receive Date: 20120312
  Receipt Date: 20120308
  Transmission Date: 20120608
  Serious: Yes (Other)
  Sender: FDA-Public Use
  Company Number: US-AMGEN-USASP2012015428

PATIENT
  Sex: Female

DRUGS (3)
  1. CELEXA [Concomitant]
  2. PROLIA [Suspect]
     Indication: OSTEOPOROSIS POSTMENOPAUSAL
     Dates: start: 20110101
  3. CALCIUM CHANNEL BLOCKERS [Concomitant]

REACTIONS (6)
  - BONE PAIN [None]
  - DYSPNOEA [None]
  - DYSPNOEA EXERTIONAL [None]
  - HYPERTENSION [None]
  - ARRHYTHMIA [None]
  - ATRIAL FIBRILLATION [None]
